FAERS Safety Report 6555219-0 (Version None)
Quarter: 2010Q1

REPORT INFORMATION
  Report Type: 
  Country: None (occurrence: None)
  Receive Date: 20100128
  Receipt Date: 20100121
  Transmission Date: 20100710
  Serious: Yes (Other)
  Sender: FDA-Public Use
  Company Number: DE-ASTRAZENECA-2010SE02717

PATIENT
  Sex: Male

DRUGS (1)
  1. MEROPENEM [Suspect]
     Indication: SEPTIC SHOCK
     Route: 041
     Dates: start: 20090820, end: 20090903

REACTIONS (1)
  - EPILEPSY [None]
